FAERS Safety Report 10707457 (Version 1)
Quarter: 2015Q1

REPORT INFORMATION
  Report Type: Spontaneous
  Country: US (occurrence: None)
  Receive Date: 20150112
  Receipt Date: 20150112
  Transmission Date: 20150721
  Serious: Yes (Hospitalization)
  Sender: FDA-Public Use
  Company Number: None

PATIENT
  Age: 76 Year
  Sex: Male
  Weight: 120 kg

DRUGS (2)
  1. CASODEX [Suspect]
     Active Substance: BICALUTAMIDE
     Dates: start: 20150104
  2. LEUPROLIDE ACETATE. [Suspect]
     Active Substance: LEUPROLIDE ACETATE
     Dates: start: 20150105

REACTIONS (4)
  - Hyperglycaemia [None]
  - Diverticulitis [None]
  - Acute kidney injury [None]
  - Appendicitis perforated [None]

NARRATIVE: CASE EVENT DATE: 20141220
